FAERS Safety Report 17450835 (Version 1)
Quarter: 2020Q1

REPORT INFORMATION
  Report Type: Spontaneous
  Country: US (occurrence: US)
  Receive Date: 20200224
  Receipt Date: 20200224
  Transmission Date: 20200409
  Serious: Yes (Death, Hospitalization)
  Sender: FDA-Public Use
  Company Number: US-MYLANLABS-2020M1018816

PATIENT
  Age: 70 Year
  Sex: Male

DRUGS (1)
  1. DIGOXIN. [Suspect]
     Active Substance: DIGOXIN
     Indication: SEDATIVE THERAPY
     Dosage: THE MAN INGESTED 10 TABLETS OF DIGOXIN
     Route: 048

REACTIONS (6)
  - Intentional product misuse [Fatal]
  - Intentional overdose [Fatal]
  - Nodal rhythm [Unknown]
  - Completed suicide [Fatal]
  - Cardiac arrest [Fatal]
  - Toxicity to various agents [Fatal]
